FAERS Safety Report 9849974 (Version 2)
Quarter: 2014Q1

REPORT INFORMATION
  Report Type: Spontaneous
  Country: US (occurrence: US)
  Receive Date: 20140128
  Receipt Date: 20140203
  Transmission Date: 20141002
  Serious: Yes (Other)
  Sender: FDA-Public Use
  Company Number: US-BAYER-2014-014110

PATIENT
  Age: 16 Year
  Sex: Female

DRUGS (2)
  1. MIRENA [Suspect]
     Indication: CONTRACEPTION
     Dosage: UNK
     Dates: start: 20131016, end: 20140117
  2. MIRENA [Suspect]
     Indication: POLYCYSTIC OVARIES

REACTIONS (6)
  - Genital haemorrhage [None]
  - Abdominal pain lower [None]
  - Device expulsion [None]
  - Pain [None]
  - Discomfort [None]
  - Injury [None]
